FAERS Safety Report 5062781-6 (Version None)
Quarter: 2006Q3

REPORT INFORMATION
  Report Type: 
  Country: None (occurrence: None)
  Receive Date: 20060724
  Receipt Date: 20060711
  Transmission Date: 20061208
  Serious: Yes (Hospitalization)
  Sender: FDA-Public Use
  Company Number: 2006087255

PATIENT
  Age: 45 Year
  Sex: Female

DRUGS (1)
  1. UNASYN [Suspect]
     Indication: DRUG USE FOR UNKNOWN INDICATION
     Dosage: 6 GRAM, INTRAVENOUS
     Route: 042
     Dates: start: 20060601, end: 20060601

REACTIONS (3)
  - EATING DISORDER [None]
  - LIVER FUNCTION TEST ABNORMAL [None]
  - STEVENS-JOHNSON SYNDROME [None]
